FAERS Safety Report 10868051 (Version 1)
Quarter: 2015Q1

REPORT INFORMATION
  Report Type: Spontaneous
  Country: US (occurrence: US)
  Receive Date: 20150225
  Receipt Date: 20150225
  Transmission Date: 20150721
  Serious: Yes (Hospitalization, Congenital Anomaly, Other)
  Sender: FDA-Public Use
  Company Number: US-APOTEX-2015AP006938

PATIENT
  Age: 1 Day
  Sex: Male

DRUGS (5)
  1. PRENATAL VITAMINS                  /07426201/ [Concomitant]
     Active Substance: ASCORBIC ACID\BIOTIN\MINERALS\NIACIN\RETINOL\TOCOPHEROL\VITAMIN B\VITAMIN D
     Indication: PRODUCT USED FOR UNKNOWN INDICATION
     Dosage: UNK UNK, UNKNOWN
     Route: 065
  2. PAROXETINE HYDROCHLORIDE. [Suspect]
     Active Substance: PAROXETINE HYDROCHLORIDE
     Indication: DEPRESSION
     Dosage: 40MG
     Route: 064
     Dates: start: 20030923
  3. PAXIL [Suspect]
     Active Substance: PAROXETINE HYDROCHLORIDE
     Dosage: 20 MG, QD
  4. IRON [Concomitant]
     Active Substance: IRON
     Indication: PRODUCT USED FOR UNKNOWN INDICATION
     Dosage: UNK, UNKNOWN
     Route: 065
  5. PAXIL [Suspect]
     Active Substance: PAROXETINE HYDROCHLORIDE
     Indication: DEPRESSION
     Dosage: 40 MG, QD
     Route: 064

REACTIONS (22)
  - Microcephaly [Unknown]
  - Necrotising colitis [Unknown]
  - Multi-organ failure [Unknown]
  - Seizure [Unknown]
  - Respiratory distress [Unknown]
  - Otitis media chronic [Unknown]
  - Attention deficit/hyperactivity disorder [Unknown]
  - Feeding disorder [Unknown]
  - Encephalopathy [Unknown]
  - Epilepsy congenital [Unknown]
  - Strabismus [Unknown]
  - Hyperthermia malignant [Unknown]
  - Speech disorder developmental [Unknown]
  - Patent ductus arteriosus [Unknown]
  - Developmental delay [Unknown]
  - Brain injury [Unknown]
  - Cerebral ischaemia [Unknown]
  - Failure to thrive [Unknown]
  - Premature baby [Unknown]
  - Foetal exposure during pregnancy [Unknown]
  - Intestinal perforation [Unknown]
  - Atrophy [Unknown]

NARRATIVE: CASE EVENT DATE: 20031023
